FAERS Safety Report 17648384 (Version 1)
Quarter: 2020Q2

REPORT INFORMATION
  Report Type: Spontaneous
  Country: GB (occurrence: GB)
  Receive Date: 20200409
  Receipt Date: 20200409
  Transmission Date: 20200713
  Serious: Yes (Other)
  Sender: FDA-Public Use
  Company Number: NVSC2020GB092401

PATIENT
  Age: 55 Year
  Sex: Male

DRUGS (4)
  1. LUTATHERA [Suspect]
     Active Substance: LUTETIUM OXODOTREOTIDE LU-177
     Indication: CARCINOID SYNDROME
     Dosage: 7.4 GBQ
     Route: 065
     Dates: start: 201801
  2. LUTATHERA [Suspect]
     Active Substance: LUTETIUM OXODOTREOTIDE LU-177
     Dosage: 7.4 GBQ
     Route: 065
     Dates: start: 201803
  3. LUTATHERA [Suspect]
     Active Substance: LUTETIUM OXODOTREOTIDE LU-177
     Dosage: 7.4 GBQ
     Route: 065
     Dates: start: 201805
  4. LUTATHERA [Suspect]
     Active Substance: LUTETIUM OXODOTREOTIDE LU-177
     Dosage: 7.4 GBQ
     Route: 065
     Dates: start: 201808

REACTIONS (8)
  - Lethargy [Unknown]
  - Epistaxis [Unknown]
  - Night sweats [Unknown]
  - Flushing [Unknown]
  - Depression [Unknown]
  - Nausea [Unknown]
  - Abdominal pain [Unknown]
  - Tenderness [Unknown]
